FAERS Safety Report 8019160-9 (Version None)
Quarter: 2012Q1

REPORT INFORMATION
  Report Type: 
  Country: None (occurrence: None)
  Receive Date: 20120103
  Receipt Date: 20111229
  Transmission Date: 20120608
  Serious: Yes (Hospitalization)
  Sender: FDA-Public Use
  Company Number: DE-SANOFI-AVENTIS-2012SA000156

PATIENT
  Age: 75 Year
  Sex: Male
  Weight: 69 kg

DRUGS (6)
  1. JEVTANA KIT [Suspect]
     Indication: PROSTATE CANCER METASTATIC
     Route: 051
     Dates: start: 20111011, end: 20111011
  2. JEVTANA KIT [Suspect]
     Route: 051
     Dates: start: 20111122, end: 20111122
  3. DEXAMETHASONE [Concomitant]
     Indication: PREMEDICATION
     Route: 065
  4. PALONOSETRON [Concomitant]
     Indication: PREMEDICATION
     Route: 065
  5. CLEMASTINE FUMARATE [Concomitant]
     Indication: PREMEDICATION
     Route: 065
  6. RANITIDINE [Concomitant]
     Indication: PREMEDICATION
     Route: 065

REACTIONS (1)
  - GASTRIC HAEMORRHAGE [None]
